FAERS Safety Report 10066975 (Version 1)
Quarter: 2014Q2

REPORT INFORMATION
  Report Type: Spontaneous
  Country: TR (occurrence: TR)
  Receive Date: 20140409
  Receipt Date: 20140409
  Transmission Date: 20141212
  Serious: Yes (Other)
  Sender: FDA-Public Use
  Company Number: TR-ROCHE-1379890

PATIENT
  Age: 35 Year
  Sex: Female
  Weight: 85 kg

DRUGS (3)
  1. XOLAIR [Suspect]
     Indication: URTICARIA CHRONIC
     Route: 058
     Dates: start: 20100831, end: 20131006
  2. TAVEGYL [Concomitant]
  3. FEXOFENADIN [Concomitant]

REACTIONS (1)
  - Lymphadenopathy [Recovered/Resolved]
